FAERS Safety Report 6945888-5 (Version None)
Quarter: 2010Q3

REPORT INFORMATION
  Report Type: 
  Country: None (occurrence: None)
  Receive Date: 20100827
  Receipt Date: 20100819
  Transmission Date: 20110219
  Serious: Yes (Hospitalization, Other)
  Sender: FDA-Public Use
  Company Number: DE-TEVA-245663ISR

PATIENT
  Sex: Female

DRUGS (4)
  1. COPAXONE [Suspect]
     Indication: MULTIPLE SCLEROSIS
     Route: 058
     Dates: start: 20100518, end: 20100527
  2. INTERFERON BETA-1A [Suspect]
     Indication: MULTIPLE SCLEROSIS
     Dosage: 0.75 ML EVERY OTHER DAY
     Route: 058
     Dates: start: 20100708
  3. INTERFERON BETA-1A [Suspect]
     Dosage: 0.50 ML EVERY OTHER DAY
     Route: 058
     Dates: start: 20100702, end: 20100706
  4. INTERFERON BETA-1A [Suspect]
     Dosage: 0.25 ML EVERY OTHER DAY
     Route: 058
     Dates: start: 20100625

REACTIONS (7)
  - B-CELL LYMPHOMA [None]
  - CHILLS [None]
  - CRYING [None]
  - GAIT DISTURBANCE [None]
  - HEADACHE [None]
  - MULTIPLE SCLEROSIS RELAPSE [None]
  - PYREXIA [None]
